FAERS Safety Report 5475877-1 (Version None)
Quarter: 2007Q4

REPORT INFORMATION
  Report Type: 
  Country: None (occurrence: None)
  Receive Date: 20071003
  Receipt Date: 20070928
  Transmission Date: 20080405
  Serious: Yes (Hospitalization)
  Sender: FDA-Public Use
  Company Number: FR-BRISTOL-MYERS SQUIBB COMPANY-13924055

PATIENT
  Age: 57 Year
  Sex: Male

DRUGS (1)
  1. ELISOR TABS [Suspect]
     Indication: MYOCARDIAL INFARCTION
     Route: 048
     Dates: start: 20030101, end: 20070401

REACTIONS (1)
  - TENDON RUPTURE [None]
